FAERS Safety Report 12457066 (Version 1)
Quarter: 2016Q2

REPORT INFORMATION
  Report Type: Spontaneous
  Country: JP (occurrence: JP)
  Receive Date: 20160610
  Receipt Date: 20160610
  Transmission Date: 20160815
  Serious: Yes (Other)
  Sender: FDA-Public Use
  Company Number: GXJP2016JP000901

PATIENT
  Sex: Male

DRUGS (2)
  1. IRESSA [Interacting]
     Active Substance: GEFITINIB
     Indication: LUNG NEOPLASM MALIGNANT
     Route: 048
  2. RIFAMPICIN CAPSULES [Suspect]
     Active Substance: RIFAMPIN
     Indication: STAPHYLOCOCCAL SKIN INFECTION
     Route: 048

REACTIONS (2)
  - Metastases to meninges [Unknown]
  - Drug interaction [Unknown]
